FAERS Safety Report 9552027 (Version 3)
Quarter: 2013Q4

REPORT INFORMATION
  Report Type: Report from Study
  Country: US (occurrence: US)
  Receive Date: 20130925
  Receipt Date: 20131105
  Transmission Date: 20140711
  Serious: No
  Sender: FDA-Public Use
  Company Number: PHEH2013US015006

PATIENT
  Sex: Male

DRUGS (9)
  1. TASIGNA [Suspect]
     Indication: PROSTATE CANCER
     Dosage: 300 MG, BID
     Route: 048
     Dates: start: 20130708
  2. TASIGNA [Suspect]
     Indication: OFF LABEL USE
  3. CIALIS [Concomitant]
     Dosage: 5 MG, UNK
  4. ACETAMINOPHEN AND CODEINE [Concomitant]
  5. LOVASTATIN [Concomitant]
     Dosage: 40 MG, UNK
  6. PROCHLORPERAZINE [Concomitant]
     Dosage: 10 MG, UNK
  7. BUPROPION HCL [Concomitant]
     Dosage: 150 MG, UNK
  8. FLONASE [Concomitant]
  9. CALCIUM [Concomitant]

REACTIONS (12)
  - Skin disorder [Unknown]
  - Rash [Unknown]
  - Pruritus [Unknown]
  - Nausea [Unknown]
  - Headache [Unknown]
  - Abdominal pain upper [Unknown]
  - Gastrooesophageal reflux disease [Unknown]
  - Myalgia [Unknown]
  - Arthralgia [Unknown]
  - Nipple pain [Unknown]
  - Nipple swelling [Unknown]
  - Alopecia [Unknown]
